FAERS Safety Report 10243309 (Version 3)
Quarter: 2014Q4

REPORT INFORMATION
  Report Type: Report from Study
  Country: DE (occurrence: DE)
  Receive Date: 20140618
  Receipt Date: 20141030
  Transmission Date: 20150528
  Serious: Yes (Other)
  Sender: FDA-Public Use
  Company Number: PHHY2014DE061844

PATIENT
  Sex: Male
  Weight: 60.5 kg

DRUGS (1)
  1. ICL670A [Suspect]
     Active Substance: DEFERASIROX
     Indication: IRON OVERLOAD
     Dosage: 1500 MG, DAILY
     Route: 048
     Dates: start: 20131111, end: 20140428

REACTIONS (6)
  - Abdominal pain [Unknown]
  - Duodenal ulcer [Recovered/Resolved]
  - Dyspepsia [Unknown]
  - Abdominal pain upper [Unknown]
  - Lymphoma [Unknown]
  - Nausea [Unknown]

NARRATIVE: CASE EVENT DATE: 20140428
